FAERS Safety Report 24752030 (Version 1)
Quarter: 2024Q4

REPORT INFORMATION
  Report Type: Report from Study
  Country: US (occurrence: US)
  Receive Date: 20241219
  Receipt Date: 20241219
  Transmission Date: 20250115
  Serious: Yes (Other)
  Sender: NOVARTIS
  Company Number: US-002147023-NVSC2023US272387

PATIENT
  Sex: Male

DRUGS (2)
  1. KESIMPTA [Suspect]
     Active Substance: OFATUMUMAB
     Indication: Multiple sclerosis
     Dosage: 20 MG, OTHER (ONCE A WEEK FOR 3 WEEKS, SKIP WEEK 4, THEN START MONTHLY AT WEEK 5)
     Route: 058
     Dates: start: 20231213
  2. FENTANYL [Suspect]
     Active Substance: FENTANYL
     Indication: Product used for unknown indication
     Dosage: UNK
     Route: 065

REACTIONS (18)
  - Multiple sclerosis relapse [Unknown]
  - Disturbance in attention [Unknown]
  - Fatigue [Unknown]
  - Accidental exposure to product [Unknown]
  - Dizziness [Unknown]
  - Feeling hot [Unknown]
  - Hyperhidrosis [Unknown]
  - Ear discomfort [Unknown]
  - Loss of consciousness [Unknown]
  - Pallor [Unknown]
  - Cyanosis [Unknown]
  - Sensory disturbance [Unknown]
  - Nasopharyngitis [Recovered/Resolved]
  - Hyperhidrosis [Recovered/Resolved]
  - Pyrexia [Recovered/Resolved]
  - Chills [Recovered/Resolved]
  - Therapeutic response shortened [Unknown]
  - Blood testosterone decreased [Unknown]
